FAERS Safety Report 4508182-8 (Version None)
Quarter: 2004Q4

REPORT INFORMATION
  Report Type: 
  Country: None (occurrence: None)
  Receive Date: 20041123
  Receipt Date: 20031106
  Transmission Date: 20050328
  Serious: No
  Sender: FDA-Public Use
  Company Number: US-GLAXOSMITHKLINE-A0433303A

PATIENT
  Age: 24 Year
  Sex: Female
  Weight: 65.5 kg

DRUGS (3)
  1. WELLBUTRIN [Suspect]
     Indication: ILL-DEFINED DISORDER
     Dosage: 150MG TWICE PER DAY
     Route: 048
     Dates: start: 20031013
  2. LEXAPRO [Concomitant]
     Indication: DEPRESSION
     Dates: start: 20030804, end: 20041013
  3. WELLBUTRIN [Concomitant]
     Indication: DEPRESSION
     Dosage: 200MG TWICE PER DAY
     Dates: start: 20031118

REACTIONS (2)
  - PRURITUS [None]
  - RASH [None]
